FAERS Safety Report 9712391 (Version 1)
Quarter: 2013Q4

REPORT INFORMATION
  Report Type: Spontaneous
  Country: US (occurrence: None)
  Receive Date: 20131125
  Receipt Date: 20131125
  Transmission Date: 20140711
  Serious: Yes (Other)
  Sender: FDA-Public Use
  Company Number: None

PATIENT
  Age: 70 Year
  Sex: Male
  Weight: 116.58 kg

DRUGS (11)
  1. HYDROXYUREA [Suspect]
     Indication: PLATELET COUNT ABNORMAL
     Dosage: 1 CAPSULE
     Route: 048
     Dates: start: 20130601, end: 20131008
  2. AMLODIPINE BESYLATE [Concomitant]
  3. ALLOPURINOL [Concomitant]
  4. METOPROLOL ER [Concomitant]
  5. OMEPRAZOLE [Concomitant]
  6. LOSARTAN [Concomitant]
  7. FERROUS SULFATE [Concomitant]
  8. SENOKOT-S [Concomitant]
  9. WARFARIN [Concomitant]
  10. PROBIOTICS [Concomitant]
  11. ASPIRIN [Concomitant]

REACTIONS (6)
  - Rash erythematous [None]
  - Rash macular [None]
  - Rash generalised [None]
  - Pruritus [None]
  - Skin exfoliation [None]
  - Product colour issue [None]
